FAERS Safety Report 4870037-7 (Version None)
Quarter: 2005Q4

REPORT INFORMATION
  Report Type: 
  Country: None (occurrence: None)
  Receive Date: 20051223
  Receipt Date: 20051215
  Transmission Date: 20060501
  Serious: Yes (Hospitalization)
  Sender: FDA-Public Use
  Company Number: 2005BI018035

PATIENT
  Sex: Female

DRUGS (1)
  1. AVONEX [Suspect]
     Indication: MULTIPLE SCLEROSIS
     Dosage: 3- UG; QW; IM
     Route: 030
     Dates: start: 20030701

REACTIONS (6)
  - DECUBITUS ULCER [None]
  - DIABETIC COMPLICATION [None]
  - DIARRHOEA [None]
  - FALL [None]
  - INFECTION [None]
  - LIMB INJURY [None]
